FAERS Safety Report 25438433 (Version 2)
Quarter: 2025Q3

REPORT INFORMATION
  Report Type: Report from Study
  Country: US (occurrence: US)
  Receive Date: 20250616
  Receipt Date: 20250723
  Transmission Date: 20251020
  Serious: Yes (Hospitalization, Other)
  Sender: RECORDATI
  Company Number: US-RECORDATI RARE DISEASES-2024006382

PATIENT
  Sex: Female
  Weight: 59 kg

DRUGS (5)
  1. PANHEMATIN [Suspect]
     Active Substance: HEMIN
     Indication: Porphyria acute
     Route: 042
     Dates: start: 20240812, end: 20240815
  2. PANHEMATIN [Suspect]
     Active Substance: HEMIN
     Dates: start: 20240910, end: 20240911
  3. PANHEMATIN [Suspect]
     Active Substance: HEMIN
     Dates: start: 202502
  4. GIVLAARI [Suspect]
     Active Substance: GIVOSIRAN SODIUM
     Indication: Porphyria acute
     Dates: start: 202411, end: 2025
  5. GIVLAARI [Suspect]
     Active Substance: GIVOSIRAN SODIUM
     Dates: start: 2025, end: 2025

REACTIONS (16)
  - Thrombosis [Unknown]
  - Disease progression [Recovered/Resolved]
  - Blood homocysteine increased [Unknown]
  - Incoherent [Unknown]
  - Depression [Unknown]
  - Injection site pain [Recovering/Resolving]
  - Pyrexia [Recovering/Resolving]
  - Pain in extremity [Recovering/Resolving]
  - Fatigue [Unknown]
  - Heart rate increased [Unknown]
  - Muscular weakness [Unknown]
  - Abdominal pain [Unknown]
  - Blood creatinine increased [Unknown]
  - Porphyrins urine increased [Unknown]
  - Tachycardia [Unknown]
  - Blood alkaline phosphatase increased [Unknown]

NARRATIVE: CASE EVENT DATE: 20240101
